FAERS Safety Report 25210776 (Version 1)
Quarter: 2025Q2

REPORT INFORMATION
  Report Type: Spontaneous
  Country: US (occurrence: US)
  Receive Date: 20250417
  Receipt Date: 20250417
  Transmission Date: 20250717
  Serious: No
  Sender: BAUSCH AND LOMB
  Company Number: US-BAUSCH-BL-2025-004870

PATIENT
  Sex: Female

DRUGS (1)
  1. JUBLIA [Suspect]
     Active Substance: EFINACONAZOLE
     Indication: Onychomycosis
     Dosage: ONCE A NIGHT
     Route: 061
     Dates: start: 2024

REACTIONS (2)
  - Nail bed disorder [Not Recovered/Not Resolved]
  - Onychomadesis [Not Recovered/Not Resolved]
